FAERS Safety Report 10538112 (Version 2)
Quarter: 2014Q4

REPORT INFORMATION
  Report Type: Spontaneous
  Country: JP (occurrence: JP)
  Receive Date: 20141023
  Receipt Date: 20141023
  Transmission Date: 20150529
  Serious: Yes (Death, Other)
  Sender: FDA-Public Use
  Company Number: PHHY2010JP096002

PATIENT
  Age: 51 Year
  Sex: Male

DRUGS (1)
  1. GLIVEC [Suspect]
     Active Substance: IMATINIB MESYLATE
     Indication: ACUTE LYMPHOCYTIC LEUKAEMIA
     Dosage: 600 MG, QD (DAILY)
     Route: 065
     Dates: end: 200904

REACTIONS (4)
  - Death [Fatal]
  - Metastases to central nervous system [Unknown]
  - Acute lymphocytic leukaemia [Unknown]
  - Acute lymphocytic leukaemia recurrent [Unknown]
